FAERS Safety Report 6482498-0 (Version None)
Quarter: 2009Q4

REPORT INFORMATION
  Report Type: 
  Country: None (occurrence: None)
  Receive Date: 20091208
  Receipt Date: 20091012
  Transmission Date: 20100525
  Serious: No
  Sender: FDA-Public Use
  Company Number: US-AMGEN-TCS364411

PATIENT
  Sex: Female
  Weight: 50.6 kg

DRUGS (3)
  1. ENBREL [Suspect]
     Indication: RHEUMATOID ARTHRITIS
     Route: 058
     Dates: start: 20030315
  2. METHOTREXATE [Concomitant]
     Dates: start: 19990101
  3. FOLIC ACID [Concomitant]

REACTIONS (7)
  - ERYTHEMA [None]
  - OSTEOTOMY [None]
  - PAIN OF SKIN [None]
  - SENSATION OF PRESSURE [None]
  - SKIN LESION [None]
  - SKIN SWELLING [None]
  - SUBCUTANEOUS NODULE [None]
